FAERS Safety Report 10161339 (Version 1)
Quarter: 2014Q2

REPORT INFORMATION
  Report Type: Report from Study
  Country: FR (occurrence: FR)
  Receive Date: 20140509
  Receipt Date: 20140509
  Transmission Date: 20141212
  Serious: Yes (Hospitalization)
  Sender: FDA-Public Use
  Company Number: FR-ROCHE-1392353

PATIENT
  Sex: Female

DRUGS (18)
  1. RITUXIMAB [Suspect]
     Indication: RHEUMATOID ARTHRITIS
     Dosage: DAY 1
     Route: 042
     Dates: start: 20070524
  2. RITUXIMAB [Suspect]
     Dosage: DAY 15
     Route: 042
     Dates: start: 20070607
  3. RITUXIMAB [Suspect]
     Dosage: DAY 1
     Route: 042
     Dates: start: 20090310
  4. RITUXIMAB [Suspect]
     Dosage: DAY 15
     Route: 042
     Dates: start: 20090323
  5. RITUXIMAB [Suspect]
     Dosage: DAY 1
     Route: 042
     Dates: start: 20100317
  6. RITUXIMAB [Suspect]
     Dosage: DAY 15
     Route: 042
     Dates: start: 20100401
  7. RITUXIMAB [Suspect]
     Dosage: DAY 1
     Route: 042
     Dates: start: 20110217
  8. RITUXIMAB [Suspect]
     Dosage: DAY 15
     Route: 042
     Dates: start: 20110303
  9. RITUXIMAB [Suspect]
     Dosage: DAY 1
     Route: 042
     Dates: start: 20110926
  10. RITUXIMAB [Suspect]
     Dosage: DAY 15
     Route: 042
     Dates: start: 20111010
  11. RITUXIMAB [Suspect]
     Dosage: SINGLE INFUSION
     Route: 042
     Dates: start: 20120322, end: 20120322
  12. CORTANCYL [Concomitant]
     Route: 065
  13. CORTANCYL [Concomitant]
     Dosage: DAY 1
     Route: 065
  14. CORTANCYL [Concomitant]
     Dosage: DAY 15
     Route: 065
  15. CORTANCYL [Concomitant]
     Route: 065
  16. CORTANCYL [Concomitant]
     Route: 065
  17. LEFLUNOMIDE [Concomitant]
     Route: 065
  18. ROCEPHINE [Concomitant]
     Route: 058
     Dates: start: 201201, end: 201203

REACTIONS (13)
  - Loss of consciousness [Recovered/Resolved]
  - Hypoglycaemia [Recovered/Resolved]
  - Hepatocellular injury [Recovered/Resolved]
  - Cholestasis [Recovered/Resolved]
  - Superinfection [Recovered/Resolved]
  - Genital haemorrhage [Recovered/Resolved]
  - Bronchitis [Recovered/Resolved]
  - Meningioma malignant [Not Recovered/Not Resolved]
  - Lower respiratory tract infection [Recovered/Resolved]
  - Diabetes mellitus inadequate control [Not Recovered/Not Resolved]
  - Tracheitis [Recovered/Resolved]
  - Bronchitis [Recovered/Resolved]
  - Blood immunoglobulin G decreased [Not Recovered/Not Resolved]
